FAERS Safety Report 4479052-9 (Version None)
Quarter: 2004Q4

REPORT INFORMATION
  Report Type: 
  Country: None (occurrence: None)
  Receive Date: 20041015
  Receipt Date: 20040612
  Transmission Date: 20050328
  Serious: Yes (Death)
  Sender: FDA-Public Use
  Company Number: N129569

PATIENT
  Age: 60 Year
  Sex: Female

DRUGS (12)
  1. PLAVIX [Suspect]
     Indication: CEREBROVASCULAR ACCIDENT
     Dosage: 75 MG OD  ORAL
     Route: 048
     Dates: start: 20001201, end: 20010428
  2. SOMAC - (PANTOPRAZOLE SODIUM) [Suspect]
     Indication: GASTRIC ULCER
     Dosage: 40 MG QD  ORAL
     Route: 048
     Dates: start: 20001201, end: 20040428
  3. PREDNISOLONE [Concomitant]
  4. PLAQUENIL [Concomitant]
  5. ZOLOFT [Concomitant]
  6. SANDOMIGRAN(PIZOTIFEN MALEATE) [Concomitant]
  7. DIFLUCAN [Concomitant]
  8. PREMARIN [Concomitant]
  9. VALIUM [Concomitant]
  10. IMODIUM [Concomitant]
  11. PANADEINE FORTE(CODEINE PHOSPHATE, PARACETAMOL) [Concomitant]
  12. MERSYNDOL FORTE(CODEINE PHOSPHATE, DOXYLAMINE SUCCINATE, PARACETAMOL) [Concomitant]

REACTIONS (3)
  - HAEMODIALYSIS [None]
  - RENAL FAILURE ACUTE [None]
  - THROMBOTIC THROMBOCYTOPENIC PURPURA [None]
